FAERS Safety Report 4674087-5 (Version None)
Quarter: 2005Q2

REPORT INFORMATION
  Report Type: 
  Country: None (occurrence: None)
  Receive Date: 20050524
  Receipt Date: 20050524
  Transmission Date: 20051028
  Serious: Yes (Other)
  Sender: FDA-Public Use
  Company Number: None

PATIENT
  Age: 40 Year
  Sex: Female
  Weight: 145.151 kg

DRUGS (2)
  1. OXYCONTIN [Suspect]
     Indication: PAIN
     Dosage: 80 MG PO  QID
     Route: 048
  2. OXYCONTIN [Suspect]
     Indication: SARCOIDOSIS
     Dosage: 80 MG PO  QID
     Route: 048

REACTIONS (1)
  - DRUG WITHDRAWAL SYNDROME [None]
